FAERS Safety Report 21755112 (Version 2)
Quarter: 2022Q4

REPORT INFORMATION
  Report Type: Spontaneous
  Country: US (occurrence: US)
  Receive Date: 20221220
  Receipt Date: 20221220
  Transmission Date: 20230112
  Serious: No
  Sender: FDA-Public Use
  Company Number: US-RECKITT BENCKISER HEALTHCARE INT LIMITED-RB-090140-2022

PATIENT
  Sex: Female

DRUGS (1)
  1. DELSYM [Suspect]
     Active Substance: DEXTROMETHORPHAN
     Indication: Cough
     Dosage: AS PER THE DIRECTIONS
     Route: 048
     Dates: start: 20220321, end: 20220404

REACTIONS (2)
  - Therapeutic product ineffective [Recovered/Resolved]
  - Incorrect product administration duration [Recovered/Resolved]
